FAERS Safety Report 8089073-5 (Version None)
Quarter: 2012Q1

REPORT INFORMATION
  Report Type: 
  Country: None (occurrence: None)
  Receive Date: 20120128
  Receipt Date: 20110718
  Transmission Date: 20120608
  Serious: No
  Sender: FDA-Public Use
  Company Number: US-ABBOTT-11P-163-0715775-00

PATIENT
  Sex: Female

DRUGS (7)
  1. DIOVAN [Concomitant]
     Indication: HYPERTENSION
     Route: 048
  2. ASPIRIN [Concomitant]
     Indication: PRODUCT USED FOR UNKNOWN INDICATION
  3. VITAMIN D [Concomitant]
     Indication: VITAMIN SUPPLEMENTATION
  4. HUMIRA [Suspect]
     Dosage: 40 MG DAY 8
     Route: 058
     Dates: start: 20110201, end: 20110201
  5. FISH OIL MEGA RED [Concomitant]
     Indication: SUPPLEMENTATION THERAPY
     Dosage: DAILY
  6. HUMIRA [Suspect]
     Indication: PSORIASIS
     Dosage: 80 MG ON DAY ONE
     Route: 058
     Dates: start: 20110211, end: 20110211
  7. HUMIRA [Suspect]
     Dosage: 40 MG DAY 22, THEN EVERY OTHER WEEK
     Route: 058
     Dates: end: 20110615

REACTIONS (2)
  - PSORIASIS [None]
  - PRURITUS [None]
